FAERS Safety Report 5591979-3 (Version None)
Quarter: 2008Q1

REPORT INFORMATION
  Report Type: 
  Country: None (occurrence: None)
  Receive Date: 20080115
  Receipt Date: 20080109
  Transmission Date: 20080703
  Serious: Yes (Other)
  Sender: FDA-Public Use
  Company Number: PHEH2006US02520

PATIENT
  Age: 50 Year
  Sex: Male

DRUGS (12)
  1. AREDIA [Suspect]
  2. ZOMETA [Suspect]
  3. OXYCONTIN [Concomitant]
     Dosage: 120 MG, QD
  4. OXYIR [Concomitant]
     Dosage: 5 MG, PRN
  5. PRILOSEC [Concomitant]
     Dosage: 40 MG, QD
  6. TYLENOL (CAPLET) [Concomitant]
     Dosage: 1300 MG, QAM
  7. THALOMID [Concomitant]
     Dosage: 100 MG, QPM
  8. COUMADIN [Concomitant]
     Dosage: 2MG, 1 TO 1 1/2 TABS DAILY
  9. LASIX [Concomitant]
     Dosage: 40 MG, UNK
  10. DEXAMETHASONE TAB [Concomitant]
     Dosage: 4 MG, 10 TABLETS EVERY TUESDAY
  11. DOCUSATE SODIUM [Concomitant]
     Dosage: 100 MG, UNK
  12. HUMALOG [Concomitant]
     Dosage: AS DIRECTED DURING STEROIDS

REACTIONS (21)
  - ANAEMIA [None]
  - BONE DEBRIDEMENT [None]
  - BONE DISORDER [None]
  - DENTAL FISTULA [None]
  - EMOTIONAL DISTRESS [None]
  - INJURY [None]
  - JAW DISORDER [None]
  - JAW OPERATION [None]
  - LUMBAR VERTEBRAL FRACTURE [None]
  - OEDEMA MOUTH [None]
  - ORAL DISCOMFORT [None]
  - ORAL PAIN [None]
  - OSTEOMYELITIS [None]
  - OSTEONECROSIS [None]
  - OSTEOSCLEROSIS [None]
  - PAIN [None]
  - PAIN IN JAW [None]
  - PARESIS [None]
  - RADIOTHERAPY [None]
  - STEM CELL TRANSPLANT [None]
  - TOOTH EXTRACTION [None]
